FAERS Safety Report 12631970 (Version 2)
Quarter: 2016Q3

REPORT INFORMATION
  Report Type: Spontaneous
  Country: US (occurrence: US)
  Receive Date: 20160808
  Receipt Date: 20160808
  Transmission Date: 20161109
  Serious: No
  Sender: FDA-Public Use
  Company Number: US-BEH-2016061531

PATIENT
  Sex: Female
  Weight: 62 kg

DRUGS (30)
  1. MORPHINE [Concomitant]
     Active Substance: MORPHINE
  2. ZANTAC [Concomitant]
     Active Substance: RANITIDINE HYDROCHLORIDE
  3. PHERGAN [Concomitant]
  4. ALBUTEROL. [Concomitant]
     Active Substance: ALBUTEROL
  5. COMPAZINE [Concomitant]
     Active Substance: PROCHLORPERAZINE MALEATE
  6. MULTIVITAMIN [Concomitant]
     Active Substance: VITAMINS
  7. BOOST [Concomitant]
     Active Substance: DIETARY SUPPLEMENT
  8. WELLBUTRIN [Concomitant]
     Active Substance: BUPROPION HYDROCHLORIDE
  9. HIZENTRA [Suspect]
     Active Substance: HUMAN IMMUNOGLOBULIN G
     Indication: IMMUNODEFICIENCY COMMON VARIABLE
     Route: 058
     Dates: start: 20101001
  10. CYANOCOBALAMIN. [Concomitant]
     Active Substance: CYANOCOBALAMIN
  11. VITAMIN D [Concomitant]
     Active Substance: CHOLECALCIFEROL
  12. AMPHETAMINE [Concomitant]
     Active Substance: AMPHETAMINE
  13. BACLOFEN. [Concomitant]
     Active Substance: BACLOFEN
  14. CLONAZEPAM. [Concomitant]
     Active Substance: CLONAZEPAM
  15. TRIAMCINOLONE [Concomitant]
     Active Substance: TRIAMCINOLONE
  16. FOLIC ACID. [Concomitant]
     Active Substance: FOLIC ACID
  17. HYDROCORTISONE. [Concomitant]
     Active Substance: HYDROCORTISONE
  18. LIDOCAINE/PRILOCAINE [Concomitant]
     Active Substance: LIDOCAINE\PRILOCAINE
  19. LMX [Concomitant]
     Active Substance: LIDOCAINE
  20. ACETAMINOPHEN. [Concomitant]
     Active Substance: ACETAMINOPHEN
  21. HIBILENS [Concomitant]
  22. ATROVENT [Concomitant]
     Active Substance: IPRATROPIUM BROMIDE
  23. IMODIUM [Concomitant]
     Active Substance: LOPERAMIDE HYDROCHLORIDE
  24. DIPHENHYDRAMINE. [Concomitant]
     Active Substance: DIPHENHYDRAMINE
  25. EPIPEN [Concomitant]
     Active Substance: EPINEPHRINE
  26. VITAMIN B [Concomitant]
     Active Substance: VITAMIN B
  27. LAC-HYDRIN [Concomitant]
     Active Substance: AMMONIUM LACTATE
  28. CYMBALTA [Concomitant]
     Active Substance: DULOXETINE HYDROCHLORIDE
  29. AFRIN [Concomitant]
     Active Substance: OXYMETAZOLINE
  30. ALBUTEROL. [Concomitant]
     Active Substance: ALBUTEROL

REACTIONS (1)
  - Skin infection [Unknown]
